FAERS Safety Report 5025994-5 (Version None)
Quarter: 2006Q2

REPORT INFORMATION
  Report Type: 
  Country: None (occurrence: None)
  Receive Date: 20060427
  Receipt Date: 20051224
  Transmission Date: 20061013
  Serious: Yes (Other)
  Sender: FDA-Public Use
  Company Number: 2005173171

PATIENT
  Age: 25 Month
  Sex: Male
  Weight: 13.8347 kg

DRUGS (2)
  1. ZITHROMAX [Suspect]
     Indication: EAR INFECTION
     Dosage: 60 MG (20 MG, 1 IN 1 D), ORAL
     Route: 048
     Dates: start: 20051220
  2. AMOXICILLIN [Suspect]
     Indication: EAR INFECTION
     Dates: start: 20051201

REACTIONS (4)
  - BLISTER [None]
  - DRUG INEFFECTIVE [None]
  - DRY SKIN [None]
  - SKIN EXFOLIATION [None]
